FAERS Safety Report 7197493-6 (Version None)
Quarter: 2010Q4

REPORT INFORMATION
  Report Type: 
  Country: None (occurrence: None)
  Receive Date: 20101208
  Receipt Date: 20101201
  Transmission Date: 20110411
  Serious: Yes (Death, Other)
  Sender: FDA-Public Use
  Company Number: 2010SP060646

PATIENT
  Age: 33 Year
  Sex: Female

DRUGS (6)
  1. SAPHRIS [Suspect]
     Indication: BIPOLAR DISORDER
     Dosage: 5 MG;BID;SL
     Route: 060
     Dates: start: 20101027
  2. LUNESTA [Concomitant]
  3. LORAZEPAM [Concomitant]
  4. CEPHALEXIN [Concomitant]
  5. PREDNISONE [Concomitant]
  6. ALBUTEROL [Concomitant]

REACTIONS (6)
  - DIZZINESS [None]
  - GAIT DISTURBANCE [None]
  - HYPERSENSITIVITY [None]
  - OEDEMA PERIPHERAL [None]
  - STOMATITIS [None]
  - URTICARIA [None]
